FAERS Safety Report 10176329 (Version 2)
Quarter: 2018Q1

REPORT INFORMATION
  Report Type: Spontaneous
  Country: DE (occurrence: DE)
  Receive Date: 20140516
  Receipt Date: 20180222
  Transmission Date: 20180508
  Serious: Yes (Life-Threatening, Hospitalization, Other)
  Sender: FDA-Public Use
  Company Number: DE-ASTRAZENECA-2014SE32864

PATIENT
  Age: 74 Year
  Sex: Male

DRUGS (23)
  1. QUETIAPINE FUMARATE. [Interacting]
     Active Substance: QUETIAPINE FUMARATE
     Route: 048
     Dates: start: 20131106, end: 20131108
  2. QUETIAPINE FUMARATE. [Interacting]
     Active Substance: QUETIAPINE FUMARATE
     Route: 048
     Dates: start: 20131109, end: 20131112
  3. QUETIAPINE FUMARATE. [Interacting]
     Active Substance: QUETIAPINE FUMARATE
     Route: 048
     Dates: start: 20140217, end: 20140224
  4. QUETIAPINE FUMARATE. [Interacting]
     Active Substance: QUETIAPINE FUMARATE
     Route: 048
     Dates: start: 20140307, end: 20140310
  5. VALPROATE SODIUM. [Interacting]
     Active Substance: VALPROATE SODIUM
     Dosage: REDUCED DOSE
     Route: 048
  6. AFUZOSINE [Concomitant]
     Route: 048
     Dates: start: 20131101
  7. QUETIAPINE FUMARATE. [Interacting]
     Active Substance: QUETIAPINE FUMARATE
     Route: 048
     Dates: start: 20131116, end: 20131118
  8. QUETIAPINE FUMARATE. [Interacting]
     Active Substance: QUETIAPINE FUMARATE
     Route: 048
     Dates: start: 20140225, end: 20140303
  9. QUETIAPINE FUMARATE. [Interacting]
     Active Substance: QUETIAPINE FUMARATE
     Route: 048
     Dates: start: 20140311
  10. VALPROATE SODIUM. [Interacting]
     Active Substance: VALPROATE SODIUM
     Route: 048
     Dates: start: 20131111
  11. ABILIFY [Interacting]
     Active Substance: ARIPIPRAZOLE
     Route: 048
     Dates: start: 20131116, end: 20131215
  12. FINASTERIDE. [Concomitant]
     Active Substance: FINASTERIDE
     Route: 048
     Dates: start: 20131101
  13. QUETIAPINE FUMARATE. [Interacting]
     Active Substance: QUETIAPINE FUMARATE
     Route: 048
     Dates: start: 20131122, end: 20140216
  14. VALPROATE SODIUM. [Interacting]
     Active Substance: VALPROATE SODIUM
     Route: 048
     Dates: start: 20131102, end: 20131110
  15. ABILIFY [Interacting]
     Active Substance: ARIPIPRAZOLE
     Route: 048
     Dates: start: 20131101, end: 20131112
  16. QUETIAPINE FUMARATE. [Suspect]
     Active Substance: QUETIAPINE FUMARATE
     Route: 048
     Dates: start: 20131103, end: 20131103
  17. QUETIAPINE FUMARATE. [Interacting]
     Active Substance: QUETIAPINE FUMARATE
     Route: 048
     Dates: start: 20131104, end: 20131105
  18. QUETIAPINE FUMARATE. [Interacting]
     Active Substance: QUETIAPINE FUMARATE
     Route: 048
     Dates: start: 20140304, end: 20140306
  19. VALPROATE SODIUM. [Interacting]
     Active Substance: VALPROATE SODIUM
     Route: 048
     Dates: start: 20130301, end: 20131101
  20. QUETIAPINE FUMARATE. [Interacting]
     Active Substance: QUETIAPINE FUMARATE
     Route: 048
     Dates: start: 20131113, end: 20131115
  21. QUETIAPINE FUMARATE. [Interacting]
     Active Substance: QUETIAPINE FUMARATE
     Route: 048
     Dates: start: 20131119, end: 20131121
  22. ABILIFY [Interacting]
     Active Substance: ARIPIPRAZOLE
     Route: 048
     Dates: start: 20131113, end: 20131115
  23. LITHIUM. [Concomitant]
     Active Substance: LITHIUM

REACTIONS (6)
  - Altered state of consciousness [Recovered/Resolved]
  - Parkinsonism [Recovered/Resolved]
  - Drug interaction [Recovered/Resolved]
  - Coma [Recovered/Resolved]
  - Blood thyroid stimulating hormone decreased [Recovered/Resolved]
  - Depressed level of consciousness [Recovered/Resolved]

NARRATIVE: CASE EVENT DATE: 20131121
